FAERS Safety Report 11672681 (Version 1)
Quarter: 2015Q4

REPORT INFORMATION
  Report Type: Spontaneous
  Country: US (occurrence: US)
  Receive Date: 20151027
  Receipt Date: 20151027
  Transmission Date: 20160304
  Serious: No
  Sender: FDA-Public Use
  Company Number: US-ELI_LILLY_AND_COMPANY-US201007000217

PATIENT
  Sex: Female

DRUGS (3)
  1. FORTEO [Suspect]
     Active Substance: TERIPARATIDE
     Indication: OSTEOPOROSIS
     Dosage: 20 UG, DAILY (1/D)
  2. CALCIUM [Concomitant]
     Active Substance: CALCIUM
  3. CALCIUM + VITAMIN D [Concomitant]
     Active Substance: CALCIUM\VITAMIN D

REACTIONS (8)
  - Speech disorder [Unknown]
  - Dental discomfort [Unknown]
  - Pain in jaw [Unknown]
  - Anxiety [Unknown]
  - Loose tooth [Unknown]
  - Tooth loss [Unknown]
  - Bone loss [Unknown]
  - Jaw disorder [Unknown]
